FAERS Safety Report 22024024 (Version 2)
Quarter: 2023Q2

REPORT INFORMATION
  Report Type: Spontaneous
  Country: US (occurrence: US)
  Receive Date: 20230223
  Receipt Date: 20230411
  Transmission Date: 20230722
  Serious: Yes (Death, Hospitalization, Other)
  Sender: FDA-Public Use
  Company Number: US-AMGEN-USASP2023029229

PATIENT

DRUGS (9)
  1. CARFILZOMIB [Suspect]
     Active Substance: CARFILZOMIB
     Indication: Plasma cell myeloma refractory
     Dosage: UNK
     Route: 065
  2. LENALIDOMIDE [Concomitant]
     Active Substance: LENALIDOMIDE
     Indication: Plasma cell myeloma refractory
     Dosage: UNK
     Route: 065
  3. POMALIDOMIDE [Concomitant]
     Active Substance: POMALIDOMIDE
     Indication: Plasma cell myeloma refractory
     Dosage: UNK
     Route: 065
  4. BORTEZOMIB [Concomitant]
     Active Substance: BORTEZOMIB
     Indication: Plasma cell myeloma refractory
     Dosage: UNK
     Route: 065
  5. IXAZOMIB [Concomitant]
     Active Substance: IXAZOMIB
     Indication: Plasma cell myeloma refractory
     Dosage: UNK
     Route: 065
  6. DARATUMUMAB [Concomitant]
     Active Substance: DARATUMUMAB
     Indication: Plasma cell myeloma refractory
     Dosage: UNK
     Route: 065
  7. ISATUXIMAB [Concomitant]
     Active Substance: ISATUXIMAB
     Indication: Plasma cell myeloma refractory
     Dosage: UNK
     Route: 065
  8. CYCLOPHOSPHAMIDE [Concomitant]
     Active Substance: CYCLOPHOSPHAMIDE
     Indication: Plasma cell myeloma refractory
     Dosage: UNK
     Route: 065
  9. BENDAMUSTINE [Concomitant]
     Active Substance: BENDAMUSTINE
     Indication: Plasma cell myeloma refractory
     Dosage: UNK
     Route: 065

REACTIONS (14)
  - Death [Fatal]
  - Unevaluable event [Unknown]
  - Plasma cell myeloma [Unknown]
  - Pyrexia [Unknown]
  - Pneumonia [Unknown]
  - Acute kidney injury [Unknown]
  - Febrile neutropenia [Unknown]
  - Acute respiratory failure [Unknown]
  - Dyspnoea [Unknown]
  - Hypercalcaemia [Unknown]
  - Sepsis [Unknown]
  - Back pain [Unknown]
  - Off label use [Unknown]
  - Pain [Unknown]
